FAERS Safety Report 5424910-1 (Version None)
Quarter: 2007Q3

REPORT INFORMATION
  Report Type: 
  Country: None (occurrence: None)
  Receive Date: 20070824
  Receipt Date: 20070813
  Transmission Date: 20080115
  Serious: Yes (Other)
  Sender: FDA-Public Use
  Company Number: US-ELI_LILLY_AND_COMPANY-US200708002498

PATIENT
  Age: 74 Year
  Sex: Female

DRUGS (7)
  1. FORTEO [Suspect]
     Dates: start: 20070615
  2. ZESTRIL [Concomitant]
     Indication: HYPERTENSION
  3. COZAAR [Concomitant]
     Indication: HYPERTENSION
     Dosage: UNK, EACH EVENING
  4. MULTI-VIT [Concomitant]
     Indication: SUPPLEMENTATION THERAPY
  5. VITAMIN E /001105/ [Concomitant]
     Indication: SUPPLEMENTATION THERAPY
  6. CALCIUM [Concomitant]
     Indication: SUPPLEMENTATION THERAPY
     Dosage: 1000 MG, UNK
  7. ACTONEL [Concomitant]
     Indication: BACK PAIN
     Dosage: UNK, DAILY (1/D)
     Dates: end: 20070615

REACTIONS (8)
  - ANXIETY [None]
  - BLOOD PRESSURE INCREASED [None]
  - BONE PAIN [None]
  - GLAUCOMA [None]
  - ILL-DEFINED DISORDER [None]
  - MUSCLE SPASMS [None]
  - ORAL MUCOSAL EXFOLIATION [None]
  - PAIN IN EXTREMITY [None]
